FAERS Safety Report 9820248 (Version 1)
Quarter: 2014Q1

REPORT INFORMATION
  Report Type: Spontaneous
  Country: US (occurrence: None)
  Receive Date: 20140113
  Receipt Date: 20140113
  Transmission Date: 20141002
  Serious: Yes (Life-Threatening, Disabling, Other)
  Sender: FDA-Public Use
  Company Number: None

PATIENT
  Age: 43 Year
  Sex: Female
  Weight: 102.06 kg

DRUGS (10)
  1. SAVELLA [Suspect]
     Indication: FIBROMYALGIA
     Dosage: 1/2 TAB X 7DAYS, 1 TAB X7 DAYS, 1 TAB IN AM
     Route: 048
     Dates: start: 20131121, end: 20131210
  2. ORPHENDRINE [Concomitant]
  3. DICLOFENAC [Concomitant]
  4. BENAZEPRIL [Concomitant]
  5. OMEPRAZOLE [Concomitant]
  6. LYRICA [Concomitant]
  7. METOPROLOL SUCCER [Concomitant]
  8. VOLTAREN [Concomitant]
  9. FLUTICASONE PROP [Concomitant]
  10. ZOLPIDEM TARTRATE [Concomitant]

REACTIONS (16)
  - Headache [None]
  - Dizziness [None]
  - Pain [None]
  - Fatigue [None]
  - Asthenia [None]
  - Hot flush [None]
  - Blood pressure increased [None]
  - Chest pain [None]
  - Movement disorder [None]
  - Slow response to stimuli [None]
  - Disorientation [None]
  - Tension headache [None]
  - Injury [None]
  - Pain [None]
  - Panic attack [None]
  - Feeling abnormal [None]
